FAERS Safety Report 19552787 (Version 1)
Quarter: 2021Q3

REPORT INFORMATION
  Report Type: Spontaneous
  Country: US (occurrence: US)
  Receive Date: 20210714
  Receipt Date: 20210714
  Transmission Date: 20211014
  Serious: No
  Sender: FDA-Public Use
  Company Number: US-SA-2021SA227949

PATIENT
  Sex: Female

DRUGS (7)
  1. HYDROCORTISONE. [Concomitant]
     Active Substance: HYDROCORTISONE
  2. ALBUTEROL SULFATE HFA [Concomitant]
     Active Substance: ALBUTEROL SULFATE
     Indication: ASTHMA
  3. MELOXICAM. [Concomitant]
     Active Substance: MELOXICAM
  4. EUCRISA [Concomitant]
     Active Substance: CRISABOROLE
  5. DUPIXENT [Suspect]
     Active Substance: DUPILUMAB
     Indication: ASTHMA
     Dosage: 300 MG, QOW
     Route: 058
  6. PIMECROLIMUS. [Concomitant]
     Active Substance: PIMECROLIMUS
  7. TRIAMCINOLONE ACETONIDE. [Concomitant]
     Active Substance: TRIAMCINOLONE ACETONIDE

REACTIONS (2)
  - Rash macular [Unknown]
  - Pruritus [Unknown]
